FAERS Safety Report 23633133 (Version 1)
Quarter: 2024Q1

REPORT INFORMATION
  Report Type: Spontaneous
  Country: CN (occurrence: CN)
  Receive Date: 20240314
  Receipt Date: 20240314
  Transmission Date: 20240409
  Serious: Yes (Hospitalization)
  Sender: FDA-Public Use
  Company Number: CN-BoehringerIngelheim-2024-BI-013152

PATIENT
  Age: 70 Year
  Sex: Male
  Weight: 60 kg

DRUGS (2)
  1. ALTEPLASE [Suspect]
     Active Substance: ALTEPLASE
     Indication: Cerebral infarction
     Route: 040
     Dates: start: 20240211, end: 20240211
  2. ALTEPLASE [Suspect]
     Active Substance: ALTEPLASE
     Route: 041
     Dates: start: 20240211, end: 20240211

REACTIONS (5)
  - Shock [Unknown]
  - Asthenia [Unknown]
  - Pain in extremity [Unknown]
  - Laryngeal pain [Unknown]
  - Hyperhidrosis [Unknown]

NARRATIVE: CASE EVENT DATE: 20240211
